FAERS Safety Report 9012232 (Version 1)
Quarter: 2013Q1

REPORT INFORMATION
  Report Type: Spontaneous
  Country: US (occurrence: US)
  Receive Date: 20130114
  Receipt Date: 20130114
  Transmission Date: 20140127
  Serious: Yes (Other)
  Sender: FDA-Public Use
  Company Number: US-BAYER-2013-004207

PATIENT
  Sex: Female

DRUGS (2)
  1. AVELOX [Suspect]
  2. NASONEX [Concomitant]

REACTIONS (1)
  - Anaphylactic reaction [None]
